FAERS Safety Report 23938925 (Version 1)
Quarter: 2024Q2

REPORT INFORMATION
  Report Type: Report from Study
  Country: MX (occurrence: MX)
  Receive Date: 20240604
  Receipt Date: 20240604
  Transmission Date: 20240715
  Serious: Yes (Death, Hospitalization)
  Sender: FDA-Public Use
  Company Number: MX-002147023-NVSC2024MX113313

PATIENT

DRUGS (1)
  1. RUXOLITINIB [Suspect]
     Active Substance: RUXOLITINIB
     Indication: Polycythaemia vera
     Dosage: 20 MG, BID
     Route: 048

REACTIONS (9)
  - Illness [Fatal]
  - Dehydration [Fatal]
  - Haemoglobin decreased [Fatal]
  - Respiratory failure [Fatal]
  - Multiple organ dysfunction syndrome [Fatal]
  - Abdominal pain upper [Fatal]
  - Pneumonia [Fatal]
  - Dyschezia [Fatal]
  - Renal failure [Fatal]
